FAERS Safety Report 16214965 (Version 1)
Quarter: 2019Q2

REPORT INFORMATION
  Report Type: Spontaneous
  Country: US (occurrence: US)
  Receive Date: 20190418
  Receipt Date: 20190418
  Transmission Date: 20190711
  Serious: No
  Sender: FDA-Public Use
  Company Number: US-JNJFOC-20190403105

PATIENT
  Sex: Female

DRUGS (1)
  1. INVOKANA [Suspect]
     Active Substance: CANAGLIFLOZIN
     Indication: TYPE 1 DIABETES MELLITUS
     Route: 048

REACTIONS (6)
  - Fungal infection [Unknown]
  - Off label use [Unknown]
  - Perineal pain [Unknown]
  - Pruritus genital [Unknown]
  - Product use in unapproved indication [Unknown]
  - Wound [Unknown]
